FAERS Safety Report 18135853 (Version 4)
Quarter: 2024Q1

REPORT INFORMATION
  Report Type: Spontaneous
  Country: FR (occurrence: FR)
  Receive Date: 20200811
  Receipt Date: 20240108
  Transmission Date: 20240410
  Serious: Yes (Other)
  Sender: FDA-Public Use
  Company Number: None

PATIENT
  Age: 54 Year
  Sex: Female

DRUGS (2)
  1. SECUKINUMAB [Suspect]
     Active Substance: SECUKINUMAB
     Indication: Psoriatic arthropathy
     Dosage: UNK
     Route: 065
  2. METHOTREXATE [Concomitant]
     Active Substance: METHOTREXATE
     Indication: Psoriatic arthropathy
     Dosage: 15 MG/KG, QW
     Route: 065

REACTIONS (6)
  - Vasculitis gastrointestinal [Recovered/Resolved]
  - Diarrhoea [Recovered/Resolved]
  - Cutaneous vasculitis [Recovered/Resolved]
  - Necrosis [Recovered/Resolved]
  - Purpura [Recovered/Resolved]
  - Psoriasis [Unknown]
